FAERS Safety Report 10441918 (Version 2)
Quarter: 2014Q4

REPORT INFORMATION
  Report Type: Spontaneous
  Country: US (occurrence: US)
  Receive Date: 20140909
  Receipt Date: 20141110
  Transmission Date: 20150528
  Serious: Yes (Death, Hospitalization, Other)
  Sender: FDA-Public Use
  Company Number: US-GLAXOSMITHKLINE-A1087537A

PATIENT
  Age: 89 Year
  Sex: Male

DRUGS (14)
  1. SINGULAIR [Concomitant]
     Active Substance: MONTELUKAST SODIUM
  2. ADVAIR HFA [Suspect]
     Active Substance: FLUTICASONE PROPIONATE\SALMETEROL XINAFOATE
     Indication: EMPHYSEMA
  3. DUONEB [Concomitant]
     Active Substance: ALBUTEROL SULFATE\IPRATROPIUM BROMIDE
  4. DILTIAZEM [Concomitant]
     Active Substance: DILTIAZEM
  5. MONTELUKAST [Concomitant]
     Active Substance: MONTELUKAST SODIUM
  6. DIGOXIN. [Concomitant]
     Active Substance: DIGOXIN
  7. OMEGA 3 [Concomitant]
     Active Substance: OMEGA-3 FATTY ACIDS
  8. LEVAQUIN [Suspect]
     Active Substance: LEVOFLOXACIN
     Indication: PYREXIA
  9. PREDNISONE. [Concomitant]
     Active Substance: PREDNISONE
  10. ALPRAZOLAM. [Concomitant]
     Active Substance: ALPRAZOLAM
  11. ASPIRIN. [Concomitant]
     Active Substance: ASPIRIN
  12. ALBUTEROL. [Concomitant]
     Active Substance: ALBUTEROL
  13. ADVAIR HFA [Suspect]
     Active Substance: FLUTICASONE PROPIONATE\SALMETEROL XINAFOATE
     Indication: CHRONIC OBSTRUCTIVE PULMONARY DISEASE
     Dosage: 1 PUFF(S), BID
     Dates: start: 2010, end: 20140824
  14. OMEPRAZOLE. [Concomitant]
     Active Substance: OMEPRAZOLE

REACTIONS (30)
  - Respiratory failure [Unknown]
  - Jaundice [Unknown]
  - Altered state of consciousness [Unknown]
  - Insomnia [Not Recovered/Not Resolved]
  - Respiratory acidosis [Unknown]
  - Sepsis [Unknown]
  - Emphysema [Fatal]
  - Coma [Unknown]
  - Fall [Unknown]
  - Cough [Unknown]
  - Oedema peripheral [Unknown]
  - Pneumothorax [Unknown]
  - Pleural effusion [Unknown]
  - Hepatomegaly [Unknown]
  - Hypercapnia [Unknown]
  - Pneumonia pseudomonal [Fatal]
  - Depressed level of consciousness [Unknown]
  - Pulmonary hypertension [Fatal]
  - Dyspnoea [Unknown]
  - Pyrexia [Unknown]
  - Injury [Unknown]
  - Leukocytosis [Unknown]
  - Respiratory failure [Fatal]
  - Atrial fibrillation [Fatal]
  - Encephalopathy [Unknown]
  - Splenomegaly [Unknown]
  - Blister [Unknown]
  - Chronic obstructive pulmonary disease [Unknown]
  - Atelectasis [Unknown]
  - QRS axis abnormal [Unknown]

NARRATIVE: CASE EVENT DATE: 201408
